FAERS Safety Report 7777369-3 (Version None)
Quarter: 2011Q3

REPORT INFORMATION
  Report Type: 
  Country: None (occurrence: None)
  Receive Date: 20110926
  Receipt Date: 20110922
  Transmission Date: 20111222
  Serious: Yes (Death, Other)
  Sender: FDA-Public Use
  Company Number: PHFR2011GB03783

PATIENT
  Sex: Male

DRUGS (2)
  1. AMISULPRIDE [Suspect]
  2. CLOZAPINE [Suspect]
     Indication: SCHIZOPHRENIA
     Dosage: 400 MG, QD
     Route: 048
     Dates: start: 19961231

REACTIONS (2)
  - DEPRESSED MOOD [None]
  - COMPLETED SUICIDE [None]
